FAERS Safety Report 25797589 (Version 4)
Quarter: 2025Q4

REPORT INFORMATION
  Report Type: Spontaneous
  Country: JP (occurrence: JP)
  Receive Date: 20250912
  Receipt Date: 20251201
  Transmission Date: 20260117
  Serious: Yes (Other)
  Sender: BridgeBio Pharma
  Company Number: JP-BRIDGEBIO-25JP001560

PATIENT

DRUGS (2)
  1. ACORAMIDIS [Suspect]
     Active Substance: ACORAMIDIS
     Indication: Cardiac amyloidosis
     Dosage: 800 MILLIGRAM, BID
     Route: 048
     Dates: start: 20250728
  2. ACORAMIDIS [Suspect]
     Active Substance: ACORAMIDIS
     Dosage: 800 MILLIGRAM, BID
     Route: 048
     Dates: start: 20250826, end: 20250829

REACTIONS (2)
  - Renal impairment [Recovered/Resolved]
  - Renal impairment [Recovered/Resolved]

NARRATIVE: CASE EVENT DATE: 20250820
